FAERS Safety Report 16701527 (Version 1)
Quarter: 2019Q3

REPORT INFORMATION
  Report Type: Report from Study
  Country: US (occurrence: US)
  Receive Date: 20190814
  Receipt Date: 20190814
  Transmission Date: 20191004
  Serious: Yes (Death)
  Sender: FDA-Public Use
  Company Number: US-TAIHO ONCOLOGY  INC-EU-2018-02272

PATIENT
  Age: 62 Year
  Sex: Male
  Weight: 71.28 kg

DRUGS (7)
  1. STIVARGA [Concomitant]
     Active Substance: REGORAFENIB
     Dosage: NI
  2. TYLENOL [Concomitant]
     Active Substance: ACETAMINOPHEN
  3. XELODA [Concomitant]
     Active Substance: CAPECITABINE
     Dosage: NI
  4. VITAMIN D3 [Concomitant]
     Active Substance: CHOLECALCIFEROL
  5. LONSURF [Suspect]
     Active Substance: TIPIRACIL HYDROCHLORIDE\TRIFLURIDINE
     Indication: COLON CANCER
     Dosage: CURRENT CYCLE UNKNOWN
     Route: 048
     Dates: end: 2018
  6. ADVIL [Concomitant]
     Active Substance: IBUPROFEN
  7. DULCOLAX NOS [Concomitant]
     Active Substance: BISACODYL OR DOCUSATE SODIUM

REACTIONS (2)
  - Feeling of despair [Unknown]
  - Death [Fatal]

NARRATIVE: CASE EVENT DATE: 2018
